FAERS Safety Report 23245182 (Version 1)
Quarter: 2023Q4

REPORT INFORMATION
  Report Type: Spontaneous
  Country: US (occurrence: US)
  Receive Date: 20231130
  Receipt Date: 20231130
  Transmission Date: 20240110
  Serious: No
  Sender: FDA-Public Use
  Company Number: US-IBSA PHARMA INC.-2023IBS000709

PATIENT

DRUGS (5)
  1. TIROSINT [Suspect]
     Active Substance: LEVOTHYROXINE SODIUM
     Indication: Thyroid mass
     Dosage: 25 MICROGRAM, QD
     Route: 048
     Dates: start: 202305, end: 202305
  2. TIROSINT [Suspect]
     Active Substance: LEVOTHYROXINE SODIUM
     Dosage: 25 MICROGRAM, QOD
     Route: 048
     Dates: start: 202306, end: 2023
  3. TIROSINT [Suspect]
     Active Substance: LEVOTHYROXINE SODIUM
     Dosage: 25 MICROGRAM, QD
     Route: 048
     Dates: start: 2023, end: 2023
  4. TIROSINT [Suspect]
     Active Substance: LEVOTHYROXINE SODIUM
     Dosage: 13 MICROGRAM, QD
     Route: 048
     Dates: start: 2023, end: 2023
  5. TIROSINT [Suspect]
     Active Substance: LEVOTHYROXINE SODIUM
     Dosage: 25 MICROGRAM, QOD
     Route: 048
     Dates: start: 20230823, end: 2023

REACTIONS (13)
  - Ear pain [Not Recovered/Not Resolved]
  - Ear congestion [Not Recovered/Not Resolved]
  - Dizziness [Not Recovered/Not Resolved]
  - Asthenia [Recovering/Resolving]
  - Abnormal dreams [Unknown]
  - Tinnitus [Unknown]
  - Vertigo [Unknown]
  - Fatigue [Unknown]
  - Hot flush [Unknown]
  - Initial insomnia [Unknown]
  - Urticaria [Unknown]
  - Rash [Unknown]
  - Off label use [Unknown]

NARRATIVE: CASE EVENT DATE: 20230101
